FAERS Safety Report 21995717 (Version 1)
Quarter: 2023Q1

REPORT INFORMATION
  Report Type: Spontaneous
  Country: US (occurrence: US)
  Receive Date: 20230215
  Receipt Date: 20230215
  Transmission Date: 20230418
  Serious: No
  Sender: FDA-Public Use
  Company Number: US-SANOFI-01489648

PATIENT
  Age: 60 Year
  Sex: Female

DRUGS (1)
  1. DUPIXENT [Suspect]
     Active Substance: DUPILUMAB
     Dosage: UNK
     Dates: start: 202212

REACTIONS (5)
  - Rash pruritic [Unknown]
  - Eye pain [Unknown]
  - Fatigue [Unknown]
  - Genital herpes [Unknown]
  - Rash macular [Unknown]
